FAERS Safety Report 5227142-5 (Version None)
Quarter: 2007Q1

REPORT INFORMATION
  Report Type: 
  Country: None (occurrence: None)
  Receive Date: 20070130
  Receipt Date: 20070126
  Transmission Date: 20070707
  Serious: Yes (Hospitalization)
  Sender: FDA-Public Use
  Company Number: SP01090

PATIENT
  Sex: Male

DRUGS (7)
  1. COLAZAL [Suspect]
     Indication: COLITIS ULCERATIVE
     Dosage: 6.75 GM (750 MG, 9 IN 1 D), ORAL
     Route: 048
     Dates: start: 19980601, end: 19980828
  2. LISINOPRIL [Concomitant]
  3. ISOPHANE INSULIN [Concomitant]
  4. DILTIAZEM [Concomitant]
  5. ACETYLSALICYLIC ACID SRT [Concomitant]
  6. INSULIN [Concomitant]
  7. PREDNISOLONE [Concomitant]

REACTIONS (1)
  - RENAL FAILURE ACUTE [None]
